FAERS Safety Report 6077399-6 (Version None)
Quarter: 2009Q1

REPORT INFORMATION
  Report Type: 
  Country: None (occurrence: None)
  Receive Date: 20090121
  Receipt Date: 20080505
  Transmission Date: 20090719
  Serious: Yes (Other)
  Sender: FDA-Public Use
  Company Number: HQWYE217515MAY07

PATIENT
  Age: 59 Year
  Sex: Female

DRUGS (11)
  1. PREMPRO [Suspect]
  2. ACTIVELLA [Suspect]
  3. CLIMARA [Suspect]
  4. ESTRACE [Suspect]
  5. ESTRATAB [Suspect]
  6. ESTRATEST [Suspect]
  7. MEDROXYPROGESTERONE [Suspect]
  8. MENEST [Suspect]
  9. OGEN [Suspect]
  10. PREMARIN [Suspect]
  11. PROVERA [Suspect]

REACTIONS (1)
  - BREAST CANCER [None]
